FAERS Safety Report 15483303 (Version 3)
Quarter: 2019Q1

REPORT INFORMATION
  Report Type: Spontaneous
  Country: GB (occurrence: GB)
  Receive Date: 20181010
  Receipt Date: 20190225
  Transmission Date: 20190417
  Serious: Yes (Other)
  Sender: FDA-Public Use
  Company Number: GB-COLGATE PALMOLIVE COMPANY-20181002305

PATIENT
  Age: 69 Year
  Sex: Female

DRUGS (1)
  1. CHLORHEXIDINE DIGLUCONATE [Suspect]
     Active Substance: CHLORHEXIDINE
     Indication: PRODUCT USED FOR UNKNOWN INDICATION
     Dosage: 0.2 %
     Route: 048

REACTIONS (1)
  - Fixed eruption [Recovered/Resolved with Sequelae]
